FAERS Safety Report 10694840 (Version 1)
Quarter: 2015Q1

REPORT INFORMATION
  Report Type: Spontaneous
  Country: US (occurrence: None)
  Receive Date: 20150105
  Receipt Date: 20150105
  Transmission Date: 20150721
  Serious: Yes (Hospitalization, Other)
  Sender: FDA-Public Use
  Company Number: 2014EPC00009

PATIENT
  Age: 8 Year
  Sex: Male

DRUGS (4)
  1. DEXMETHYLPHENIDATE [Suspect]
     Active Substance: DEXMETHYLPHENIDATE HYDROCHLORIDE
     Indication: ATTENTION DEFICIT/HYPERACTIVITY DISORDER
  2. RISPERIDONE. [Suspect]
     Active Substance: RISPERIDONE
     Indication: HALLUCINATION, AUDITORY
  3. DEXMETHYLPHENIDATE [Suspect]
     Active Substance: DEXMETHYLPHENIDATE HYDROCHLORIDE
     Indication: ATTENTION DEFICIT/HYPERACTIVITY DISORDER
  4. GUANFACINE. [Suspect]
     Active Substance: GUANFACINE
     Route: 048

REACTIONS (8)
  - Nasopharyngitis [None]
  - Drug interaction [None]
  - Accidental overdose [None]
  - Fatigue [None]
  - Somnolence [None]
  - Hypotension [None]
  - Sinus bradycardia [None]
  - Hyperhidrosis [None]
